FAERS Safety Report 10035001 (Version 13)
Quarter: 2018Q2

REPORT INFORMATION
  Report Type: Report from Study
  Country: CN (occurrence: CN)
  Receive Date: 20140325
  Receipt Date: 20180517
  Transmission Date: 20180711
  Serious: Yes (Hospitalization)
  Sender: FDA-Public Use
  Company Number: CN-ROCHE-1366525

PATIENT
  Age: 63 Year
  Sex: Male
  Weight: 70 kg

DRUGS (81)
  1. VINCRISTINE [Suspect]
     Active Substance: VINCRISTINE
     Indication: DIFFUSE LARGE B-CELL LYMPHOMA
     Dosage: ON 06/MAR/2014, THE PATIENT RECEIVED MOST RECENT DOSE OF VINCRISTINE AT DOSE OF 2 MG.?ON 24/JUN/2014
     Route: 050
     Dates: start: 20140212
  2. VITAMIN B6 [Concomitant]
     Active Substance: PYRIDOXINE HYDROCHLORIDE
     Route: 065
     Dates: start: 20140208, end: 20140226
  3. LANSOPRAZOLE. [Concomitant]
     Active Substance: LANSOPRAZOLE
     Route: 065
     Dates: start: 20140207, end: 20140225
  4. PROMETHAZINE HYDROCHLORIDE. [Concomitant]
     Active Substance: PROMETHAZINE HYDROCHLORIDE
     Indication: INFUSION RELATED REACTION
     Route: 065
     Dates: start: 20140211, end: 20140211
  5. PLACENTA POLYPEPTIDE [Concomitant]
     Route: 065
     Dates: start: 20140429, end: 20140503
  6. HUMAN ALBUMIN [Concomitant]
     Active Substance: ALBUMIN HUMAN
     Indication: HYPOALBUMINAEMIA
     Route: 065
     Dates: start: 20140212, end: 20140215
  7. TORASEMIDE [Concomitant]
     Active Substance: TORSEMIDE
     Indication: POLYURIA
     Route: 065
     Dates: start: 20140223, end: 20140223
  8. TINIDAZOLE. [Concomitant]
     Active Substance: TINIDAZOLE
     Indication: ORAL INFECTION
     Route: 048
     Dates: start: 20140218, end: 20140218
  9. RIBONUCLEIC ACID [Concomitant]
     Active Substance: RIBONUCLEIC ACID
     Route: 065
     Dates: start: 20140728, end: 20140729
  10. INVERT SUGAR [Concomitant]
     Active Substance: INVERT SUGAR
     Route: 065
     Dates: start: 20140206, end: 20140215
  11. LANSOPRAZOLE. [Concomitant]
     Active Substance: LANSOPRAZOLE
     Route: 065
     Dates: start: 20140522, end: 20140523
  12. LENTINAN [Concomitant]
     Active Substance: LENTINAN
     Route: 065
     Dates: start: 20140207, end: 20140211
  13. LENTINAN [Concomitant]
     Active Substance: LENTINAN
     Route: 065
     Dates: start: 20140327, end: 20140404
  14. PROMETHAZINE HYDROCHLORIDE. [Concomitant]
     Active Substance: PROMETHAZINE HYDROCHLORIDE
     Route: 065
     Dates: start: 20140822, end: 20140822
  15. PLACENTA POLYPEPTIDE [Concomitant]
     Route: 065
     Dates: start: 20140605, end: 20140605
  16. DEXTROMETHORPHAN HYDROBROMIDE. [Concomitant]
     Active Substance: DEXTROMETHORPHAN HYDROBROMIDE
     Route: 065
     Dates: start: 20140522, end: 20140522
  17. DEXTROMETHORPHAN HYDROBROMIDE. [Concomitant]
     Active Substance: DEXTROMETHORPHAN HYDROBROMIDE
     Route: 065
     Dates: start: 20140728, end: 20140728
  18. SODIUM CHLORIDE. [Concomitant]
     Active Substance: SODIUM CHLORIDE
     Indication: FEBRILE NEUTROPENIA
     Route: 065
     Dates: start: 20140223, end: 20140226
  19. POLYENEPHOSPHATIDYL CHOLINE [Concomitant]
     Route: 065
     Dates: start: 20140227, end: 20140305
  20. OMEPRAZOLE SODIUM [Concomitant]
     Active Substance: OMEPRAZOLE SODIUM
     Route: 065
     Dates: start: 20140526, end: 20140602
  21. ALPROSTADIL. [Concomitant]
     Active Substance: ALPROSTADIL
     Route: 065
     Dates: start: 20140429, end: 20140503
  22. PALONOSETRON HYDROCHLORIDE. [Concomitant]
     Active Substance: PALONOSETRON HYDROCHLORIDE
     Indication: VOMITING
     Route: 065
     Dates: start: 20140522, end: 20140522
  23. POTASSIUM CHLORIDE. [Concomitant]
     Active Substance: POTASSIUM CHLORIDE
     Route: 065
     Dates: start: 20140522, end: 20140523
  24. OMEPRAZOLE. [Concomitant]
     Active Substance: OMEPRAZOLE
     Route: 065
     Dates: start: 20140308, end: 20140314
  25. CYCLOPHOSPHAMIDE. [Suspect]
     Active Substance: CYCLOPHOSPHAMIDE
     Indication: DIFFUSE LARGE B-CELL LYMPHOMA
     Dosage: ON 06/MAR/2014, THE PATIENT RECEIVED MOST RECENT DOSE OF CYCLOPHOSPHAMIDE AT DOSE OF 1400 MG.?ON 24/
     Route: 042
     Dates: start: 20140212
  26. SODIUM BICARBONATE. [Concomitant]
     Active Substance: SODIUM BICARBONATE
     Indication: TUMOUR LYSIS SYNDROME
     Route: 065
     Dates: start: 20140207, end: 20140215
  27. SODIUM BICARBONATE. [Concomitant]
     Active Substance: SODIUM BICARBONATE
     Route: 065
     Dates: start: 20140304, end: 20140307
  28. PROMETHAZINE HYDROCHLORIDE. [Concomitant]
     Active Substance: PROMETHAZINE HYDROCHLORIDE
     Route: 065
     Dates: start: 20140502, end: 20140502
  29. PROMETHAZINE HYDROCHLORIDE. [Concomitant]
     Active Substance: PROMETHAZINE HYDROCHLORIDE
     Route: 065
     Dates: start: 20140728, end: 20140728
  30. PROMETHAZINE HYDROCHLORIDE. [Concomitant]
     Active Substance: PROMETHAZINE HYDROCHLORIDE
     Route: 065
     Dates: start: 20140306, end: 20140306
  31. DEXRAZOXANE. [Concomitant]
     Active Substance: DEXRAZOXANE
     Route: 065
     Dates: start: 20140306, end: 20140306
  32. FILGRASTIM [Concomitant]
     Active Substance: FILGRASTIM
     Indication: NEUTROPENIA
  33. MOXIFLOXACIN HYDROCHLORIDE. [Concomitant]
     Active Substance: MOXIFLOXACIN HYDROCHLORIDE
     Indication: FEBRILE NEUTROPENIA
     Route: 065
     Dates: start: 20140223, end: 20140226
  34. GLUTATHIONE [Concomitant]
     Active Substance: GLUTATHIONE
     Route: 065
     Dates: start: 20140304, end: 20140307
  35. LANSOPRAZOLE. [Concomitant]
     Active Substance: LANSOPRAZOLE
     Route: 065
     Dates: start: 20140304, end: 20140307
  36. LANSOPRAZOLE. [Concomitant]
     Active Substance: LANSOPRAZOLE
     Route: 065
     Dates: start: 20140821, end: 20140822
  37. SODIUM BICARBONATE. [Concomitant]
     Active Substance: SODIUM BICARBONATE
     Route: 065
     Dates: start: 20140223, end: 20140226
  38. CELECOXIB. [Concomitant]
     Active Substance: CELECOXIB
     Indication: PYREXIA
     Route: 065
     Dates: start: 20140211, end: 20140211
  39. DEXRAZOXANE. [Concomitant]
     Active Substance: DEXRAZOXANE
     Route: 065
     Dates: start: 20140502, end: 20140502
  40. PLACENTA POLYPEPTIDE [Concomitant]
     Route: 065
     Dates: start: 20140728, end: 20140729
  41. DEXTROMETHORPHAN HYDROBROMIDE. [Concomitant]
     Active Substance: DEXTROMETHORPHAN HYDROBROMIDE
     Route: 065
     Dates: start: 20140502, end: 20140502
  42. CALCIUM CARBONATE/CHOLECALCIFEROL [Concomitant]
     Active Substance: CALCIUM CARBONATE\CHOLECALCIFEROL
     Indication: HYPOCALCAEMIA
     Route: 065
     Dates: start: 20140227
  43. CALCIUM CARBONATE/CHOLECALCIFEROL [Concomitant]
     Active Substance: CALCIUM CARBONATE\CHOLECALCIFEROL
     Route: 065
     Dates: start: 20140522, end: 20140523
  44. ALPROSTADIL. [Concomitant]
     Active Substance: ALPROSTADIL
     Route: 065
     Dates: start: 20140522, end: 20140523
  45. PIPERACILLIN SODIUM/TAZOBACTAM SODIUM [Concomitant]
     Active Substance: PIPERACILLIN SODIUM\TAZOBACTAM SODIUM
     Indication: INFECTION
     Route: 065
     Dates: start: 20140429, end: 20140503
  46. DOXORUBICIN [Suspect]
     Active Substance: DOXORUBICIN
     Indication: DIFFUSE LARGE B-CELL LYMPHOMA
     Dosage: ON 06/MAR/2014, THE PATIENT RECEIVED MOST RECENT DOSE OF DOXORUBICIN AT DOSE OF 95 MG.?ON 24/JUN/201
     Route: 042
     Dates: start: 20140212
  47. RIBONUCLEIC ACID [Concomitant]
     Active Substance: RIBONUCLEIC ACID
     Route: 065
     Dates: start: 20140429, end: 20140503
  48. LENTINAN [Concomitant]
     Active Substance: LENTINAN
     Route: 065
     Dates: start: 20140605, end: 20140616
  49. SODIUM BICARBONATE. [Concomitant]
     Active Substance: SODIUM BICARBONATE
     Route: 065
     Dates: start: 20140429, end: 20140503
  50. CALCIUM GLUCONATE. [Concomitant]
     Active Substance: CALCIUM GLUCONATE
     Route: 065
     Dates: start: 20140213, end: 20140213
  51. PROMETHAZINE HYDROCHLORIDE. [Concomitant]
     Active Substance: PROMETHAZINE HYDROCHLORIDE
     Route: 065
     Dates: start: 20140522, end: 20140522
  52. DEXRAZOXANE. [Concomitant]
     Active Substance: DEXRAZOXANE
     Route: 065
     Dates: start: 20140212, end: 20140212
  53. ALPROSTADIL. [Concomitant]
     Active Substance: ALPROSTADIL
     Route: 065
     Dates: start: 20140605, end: 20140616
  54. ESOMEPRAZOLE SODIUM. [Concomitant]
     Active Substance: ESOMEPRAZOLE SODIUM
     Route: 065
     Dates: start: 20140429, end: 20140503
  55. GLUTATHIONE [Concomitant]
     Active Substance: GLUTATHIONE
     Route: 065
     Dates: start: 20140206, end: 20140226
  56. OBINUTUZUMAB. [Suspect]
     Active Substance: OBINUTUZUMAB
     Indication: DIFFUSE LARGE B-CELL LYMPHOMA
     Dosage: ON 06/MAR/2014, THE PATIENT RECEIVED MOST RECENT DOSE OF OBINUTUZUMAB AT DOSE OF 4.0 MG/ML AT VOLUME
     Route: 042
     Dates: start: 20140211
  57. LENTINAN [Concomitant]
     Active Substance: LENTINAN
     Route: 065
     Dates: start: 20140728, end: 20140729
  58. VITAMIN C [Concomitant]
     Active Substance: ASCORBIC ACID
     Route: 065
     Dates: start: 20140208, end: 20140226
  59. PROMETHAZINE HYDROCHLORIDE. [Concomitant]
     Active Substance: PROMETHAZINE HYDROCHLORIDE
     Indication: ANTIALLERGIC THERAPY
     Route: 065
     Dates: start: 20140218, end: 20140218
  60. PLACENTA POLYPEPTIDE [Concomitant]
     Route: 065
     Dates: start: 20140212, end: 20140226
  61. DEXTROMETHORPHAN HYDROBROMIDE. [Concomitant]
     Active Substance: DEXTROMETHORPHAN HYDROBROMIDE
     Indication: PYREXIA
     Dosage: UNKNOWN INGREDIENTS
     Route: 065
     Dates: start: 20140218, end: 20140218
  62. SODIUM CHLORIDE. [Concomitant]
     Active Substance: SODIUM CHLORIDE
     Indication: APPENDICEAL ABSCESS
     Route: 065
     Dates: start: 20140314, end: 20140317
  63. SODIUM CHLORIDE. [Concomitant]
     Active Substance: SODIUM CHLORIDE
     Indication: APPENDICEAL ABSCESS
     Route: 065
     Dates: start: 20140325, end: 20140404
  64. RIBONUCLEIC ACID [Concomitant]
     Active Substance: RIBONUCLEIC ACID
     Route: 065
     Dates: start: 20140206, end: 20140225
  65. INVERT SUGAR [Concomitant]
     Active Substance: INVERT SUGAR
     Route: 065
     Dates: start: 20140304, end: 20140304
  66. PROMETHAZINE HYDROCHLORIDE. [Concomitant]
     Active Substance: PROMETHAZINE HYDROCHLORIDE
     Route: 065
     Dates: start: 20140225, end: 20140225
  67. CALCIUM CARBONATE/CHOLECALCIFEROL [Concomitant]
     Active Substance: CALCIUM CARBONATE\CHOLECALCIFEROL
     Route: 065
     Dates: start: 20140522, end: 20140523
  68. AZASETRON HYDROCHLORIDE [Concomitant]
     Active Substance: AZASETRON HYDROCHLORIDE
     Indication: VOMITING
     Route: 065
     Dates: start: 20140526, end: 20140528
  69. POTASSIUM CHLORIDE. [Concomitant]
     Active Substance: POTASSIUM CHLORIDE
     Route: 065
     Dates: start: 20140307, end: 20140314
  70. SODIUM DEOXYRIBONUCLEOTIDE [Concomitant]
     Route: 065
     Dates: start: 20140522, end: 20140523
  71. GLUTATHIONE [Concomitant]
     Active Substance: GLUTATHIONE
     Route: 065
     Dates: start: 20140522, end: 20140523
  72. GLUTATHIONE [Concomitant]
     Active Substance: GLUTATHIONE
     Route: 065
     Dates: start: 20140605, end: 20140616
  73. GLUTATHIONE [Concomitant]
     Active Substance: GLUTATHIONE
     Route: 065
     Dates: start: 20140728, end: 20140729
  74. PREDNISONE. [Suspect]
     Active Substance: PREDNISONE
     Indication: DIFFUSE LARGE B-CELL LYMPHOMA
     Dosage: ON 10/MAR/2014, THE PATIENT RECEIVED MOST RECENT DOSE OF PREDNISONE AT DOSE OF 100 MG.?ON 28/JUN/201
     Route: 048
     Dates: start: 20140211
  75. CALCIUM GLUCONATE. [Concomitant]
     Active Substance: CALCIUM GLUCONATE
     Indication: HYPOCALCAEMIA
     Route: 065
     Dates: start: 20140208, end: 20140208
  76. PROMETHAZINE HYDROCHLORIDE. [Concomitant]
     Active Substance: PROMETHAZINE HYDROCHLORIDE
     Route: 065
     Dates: start: 20140211, end: 20140211
  77. DEXRAZOXANE. [Concomitant]
     Active Substance: DEXRAZOXANE
     Route: 065
     Dates: start: 20140522, end: 20140522
  78. DEXTROMETHORPHAN HYDROBROMIDE. [Concomitant]
     Active Substance: DEXTROMETHORPHAN HYDROBROMIDE
     Route: 065
     Dates: start: 20140225, end: 20140225
  79. FILGRASTIM [Concomitant]
     Active Substance: FILGRASTIM
     Indication: LEUKOPENIA
     Route: 065
     Dates: start: 20140221, end: 20140225
  80. HYDROCORTISONE SODIUM SUCCINATE [Concomitant]
     Active Substance: HYDROCORTISONE SODIUM SUCCINATE
     Indication: INFECTION
     Route: 065
     Dates: start: 20140429, end: 20140429
  81. GLUTATHIONE [Concomitant]
     Active Substance: GLUTATHIONE
     Route: 065
     Dates: start: 20140821, end: 20140821

REACTIONS (2)
  - Infection [Recovered/Resolved]
  - Appendiceal abscess [Recovered/Resolved]

NARRATIVE: CASE EVENT DATE: 20140307
